FAERS Safety Report 9123926 (Version 1)
Quarter: 2013Q1

REPORT INFORMATION
  Report Type: Spontaneous
  Country: US (occurrence: US)
  Receive Date: 20130116
  Receipt Date: 20130116
  Transmission Date: 20140127
  Serious: No
  Sender: FDA-Public Use
  Company Number: US-PFIZER INC-2013014148

PATIENT
  Age: 70 Year
  Sex: Male

DRUGS (9)
  1. EFFEXOR [Suspect]
     Indication: DEPRESSION
     Dosage: 300 MG, 1X/DAY (1 IN 1 D)
     Dates: start: 20120723, end: 2012
  2. EFFEXOR [Suspect]
     Dosage: 225 MG, 1X/DAY (1 IN 1 D)
     Dates: start: 2012, end: 20121111
  3. EFFEXOR [Suspect]
     Dosage: 150 MG, 1X/DAY
     Dates: start: 20121112
  4. VIIBRYD [Suspect]
     Indication: DEPRESSION
     Dosage: 10 MG, 1X/DAY (1 IN 1 D)
     Route: 048
     Dates: start: 20121112, end: 20121118
  5. VIIBRYD [Suspect]
     Dosage: 20 MG, 1X/DAY (1 IN 1 D)
     Route: 048
     Dates: start: 20121119, end: 20121125
  6. VIIBRYD [Suspect]
     Dosage: 40 MG, 1X/DAY (1 IN 1 D)
     Route: 048
     Dates: start: 20121126
  7. METFORMIN [Concomitant]
     Indication: DIABETES MELLITUS
     Dosage: UNK
  8. GLIPIZIDE [Concomitant]
     Dosage: UNK
  9. KLONOPIN [Concomitant]
     Indication: ANXIETY
     Dosage: 0.5 MG, 2X/DAY (2 IN 1 D)

REACTIONS (4)
  - Headache [Unknown]
  - Anxiety [Not Recovered/Not Resolved]
  - Nausea [Unknown]
  - Feeling abnormal [Not Recovered/Not Resolved]
